FAERS Safety Report 18704992 (Version 1)
Quarter: 2021Q1

REPORT INFORMATION
  Report Type: Spontaneous
  Country: CA (occurrence: CA)
  Receive Date: 20210105
  Receipt Date: 20210105
  Transmission Date: 20210419
  Serious: Yes (Disabling)
  Sender: FDA-Public Use
  Company Number: CA-INDIVIOR US-INDV-127778-2020

PATIENT
  Age: 24 Year
  Weight: 99.77 kg

DRUGS (1)
  1. BUPRENORPHINE/NALOXONE TABLET [Suspect]
     Active Substance: BUPRENORPHINE HYDROCHLORIDE\NALOXONE HYDROCHLORIDE
     Indication: DRUG DEPENDENCE
     Dosage: 1.5 DOSAGE FORM, UNKNOWN
     Route: 060

REACTIONS (3)
  - Product substitution issue [Recovered/Resolved]
  - Abdominal pain [Recovered/Resolved]
  - Nausea [Recovered/Resolved]
